FAERS Safety Report 9626551 (Version 2)
Quarter: 2013Q4

REPORT INFORMATION
  Report Type: Spontaneous
  Country: US (occurrence: US)
  Receive Date: 20131016
  Receipt Date: 20131113
  Transmission Date: 20140711
  Serious: Yes (Hospitalization, Other)
  Sender: FDA-Public Use
  Company Number: US-BAYER-2013-124916

PATIENT
  Age: 22 Year
  Sex: Female
  Weight: 70.3 kg

DRUGS (3)
  1. MIRENA [Suspect]
     Indication: CONTRACEPTION
     Dosage: 20 MCG/24HR, CONT
     Route: 015
     Dates: start: 20110712, end: 20130225
  2. IRON [Concomitant]
     Dosage: UNK
     Dates: start: 201105
  3. PRENATAL VITAMINS [Concomitant]

REACTIONS (7)
  - Uterine perforation [None]
  - Genital haemorrhage [None]
  - Injury [None]
  - Emotional distress [None]
  - Abdominal pain [None]
  - Insomnia [None]
  - Device dislocation [None]
